FAERS Safety Report 22219075 (Version 4)
Quarter: 2023Q2

REPORT INFORMATION
  Report Type: Report from Study
  Country: CA (occurrence: CA)
  Receive Date: 20230417
  Receipt Date: 20230511
  Transmission Date: 20230722
  Serious: Yes (Other)
  Sender: FDA-Public Use
  Company Number: CA-002147023-NVSC2023CA075027

PATIENT
  Age: 80 Year
  Sex: Female

DRUGS (3)
  1. NEORAL [Suspect]
     Active Substance: CYCLOSPORINE
     Indication: Product used for unknown indication
     Dosage: UNK
     Route: 065
     Dates: start: 20180915
  2. NEORAL [Suspect]
     Active Substance: CYCLOSPORINE
     Dosage: UNK
     Route: 048
     Dates: start: 20181114, end: 20190415
  3. SORIATANE [Suspect]
     Active Substance: ACITRETIN
     Indication: Product used for unknown indication
     Dosage: UNK
     Route: 065
     Dates: start: 20181015, end: 20181108

REACTIONS (11)
  - Tuberculosis [Recovered/Resolved]
  - Skin cancer [Unknown]
  - Psoriasis [Unknown]
  - Depression [Unknown]
  - Pain of skin [Unknown]
  - Self-consciousness [Unknown]
  - Pruritus [Unknown]
  - Emotional distress [Unknown]
  - Pain [Unknown]
  - Product distribution issue [Unknown]
  - Treatment failure [Unknown]

NARRATIVE: CASE EVENT DATE: 20230405
